FAERS Safety Report 23862638 (Version 1)
Quarter: 2024Q2

REPORT INFORMATION
  Report Type: Spontaneous
  Country: US (occurrence: None)
  Receive Date: 20240515
  Receipt Date: 20240515
  Transmission Date: 20240716
  Serious: Yes (Other)
  Sender: FDA-Public Use
  Company Number: None

PATIENT
  Age: 63 Year
  Sex: Female
  Weight: 67.5 kg

DRUGS (1)
  1. CANASA [Suspect]
     Active Substance: MESALAMINE
     Indication: Colitis ulcerative
     Dates: start: 20240401, end: 20240412

REACTIONS (8)
  - Flatulence [None]
  - Diarrhoea [None]
  - Anorectal discomfort [None]
  - Supraventricular extrasystoles [None]
  - Ventricular extrasystoles [None]
  - Heart rate irregular [None]
  - Atrial fibrillation [None]
  - Therapy cessation [None]

NARRATIVE: CASE EVENT DATE: 20240401
